FAERS Safety Report 13527947 (Version 1)
Quarter: 2017Q2

REPORT INFORMATION
  Report Type: Spontaneous
  Country: US (occurrence: US)
  Receive Date: 20170509
  Receipt Date: 20170509
  Transmission Date: 20170830
  Serious: No
  Sender: FDA-Public Use
  Company Number: US-PFIZER INC-2017201551

PATIENT
  Sex: Female

DRUGS (1)
  1. PREMARIN [Suspect]
     Active Substance: ESTROGENS, CONJUGATED
     Dosage: APPLIED 2 GRAMS A DAY FOR APPROXIMATELY 2 WEEKS

REACTIONS (2)
  - Incorrect dose administered [Recovered/Resolved]
  - Genital swelling [Recovered/Resolved]
